FAERS Safety Report 6814854-2 (Version None)
Quarter: 2010Q3

REPORT INFORMATION
  Report Type: 
  Country: None (occurrence: None)
  Receive Date: 20100702
  Receipt Date: 20100624
  Transmission Date: 20110219
  Serious: Yes (Hospitalization)
  Sender: FDA-Public Use
  Company Number: B0662132A

PATIENT
  Sex: Male

DRUGS (8)
  1. ZOVIRAX [Suspect]
     Indication: PROPHYLAXIS
     Dosage: 800MG THREE TIMES PER DAY
     Route: 048
     Dates: start: 20091211, end: 20091215
  2. TAMIFLU [Suspect]
     Dosage: 75MG TWICE PER DAY
     Route: 048
     Dates: start: 20091210, end: 20091215
  3. ROVAMYCINE [Concomitant]
     Indication: PRODUCT USED FOR UNKNOWN INDICATION
     Dosage: 1500000IU THREE TIMES PER DAY
     Route: 042
     Dates: start: 20091210, end: 20091216
  4. METHYLPREDNISOLONE [Concomitant]
     Indication: PRODUCT USED FOR UNKNOWN INDICATION
     Route: 042
     Dates: start: 20091210, end: 20091216
  5. MORPHIN [Concomitant]
     Indication: PRODUCT USED FOR UNKNOWN INDICATION
     Dosage: 24MG PER DAY
     Route: 042
     Dates: start: 20091210, end: 20091216
  6. XYLOCAINE [Concomitant]
     Indication: PRODUCT USED FOR UNKNOWN INDICATION
     Route: 002
     Dates: start: 20091210
  7. MOPRAL [Concomitant]
     Indication: PRODUCT USED FOR UNKNOWN INDICATION
     Dosage: 40MG UNKNOWN
     Route: 042
  8. EFFERALGAN [Concomitant]
     Indication: PRODUCT USED FOR UNKNOWN INDICATION
     Route: 048

REACTIONS (2)
  - BLOOD CREATININE INCREASED [None]
  - RENAL FAILURE ACUTE [None]
